FAERS Safety Report 4292029-1 (Version None)
Quarter: 2004Q1

REPORT INFORMATION
  Report Type: 
  Country: None (occurrence: None)
  Receive Date: 20040126
  Receipt Date: 20031027
  Transmission Date: 20041129
  Serious: No
  Sender: FDA-Public Use
  Company Number: USA031050901

PATIENT
  Age: 80 Year
  Sex: Female

DRUGS (3)
  1. FORTEO [Suspect]
     Dates: start: 20020101, end: 20031003
  2. NORVASC [Concomitant]
  3. FOSAMAX [Concomitant]

REACTIONS (5)
  - CARDIAC DISORDER [None]
  - CHEST PAIN [None]
  - HOARSENESS [None]
  - OESOPHAGEAL PAIN [None]
  - PHARYNGOLARYNGEAL PAIN [None]
